FAERS Safety Report 4463433-3 (Version None)
Quarter: 2004Q3

REPORT INFORMATION
  Report Type: 
  Country: None (occurrence: None)
  Receive Date: 20040928
  Receipt Date: 20040915
  Transmission Date: 20050211
  Serious: Yes (Other)
  Sender: FDA-Public Use
  Company Number: 209077

PATIENT
  Age: 48 Year
  Sex: Male
  Weight: 99 kg

DRUGS (2)
  1. NUTROPIN AQ [Suspect]
     Indication: GROWTH HORMONE DEFICIENCY
     Dosage: 0.3 MG, QD, SUBCUTANEOUS
     Route: 058
     Dates: start: 20040115, end: 20040504
  2. TESTOSTERONE [Concomitant]

REACTIONS (3)
  - MUSCULOSKELETAL STIFFNESS [None]
  - OEDEMA PERIPHERAL [None]
  - PITUITARY TUMOUR RECURRENT [None]
